FAERS Safety Report 9110017 (Version 1)
Quarter: 2013Q1

REPORT INFORMATION
  Report Type: Report from Study
  Country: JP (occurrence: JP)
  Receive Date: 20130222
  Receipt Date: 20130222
  Transmission Date: 20140127
  Serious: Yes (Hospitalization)
  Sender: FDA-Public Use
  Company Number: JP-ABBOTT-13P-087-1045936-00

PATIENT
  Age: 67 Year
  Sex: Female
  Weight: 46.4 kg

DRUGS (14)
  1. HUMIRA [Suspect]
     Indication: BEHCET^S SYNDROME
     Dosage: INITIAL
     Route: 058
     Dates: start: 20110809, end: 20110809
  2. HUMIRA [Suspect]
     Dosage: WEEK 2
     Route: 058
     Dates: start: 20110822, end: 20110822
  3. HUMIRA [Suspect]
     Route: 058
     Dates: start: 20110906
  4. PREDNISOLONE [Concomitant]
     Indication: BEHCET^S SYNDROME
     Dosage: 5 MG DAILY
     Route: 048
     Dates: start: 20110614
  5. MESALAZINE [Concomitant]
     Indication: BEHCET^S SYNDROME
     Dosage: 3000 MG DAILY
     Route: 048
     Dates: start: 20120828
  6. COLCHICINE [Concomitant]
     Indication: BEHCET^S SYNDROME
     Dosage: 2 MG DAILY
     Route: 048
     Dates: start: 19990601
  7. LANSOPRAZOLE [Concomitant]
     Indication: PROPHYLAXIS AGAINST GASTROINTESTINAL ULCER
     Dosage: 15 MG DAILY
     Route: 048
     Dates: start: 20120828
  8. UNKNOWN MEDICATION [Concomitant]
     Indication: DIABETES MELLITUS
     Route: 058
     Dates: start: 20121212
  9. BAYASPIRIN [Concomitant]
     Indication: CEREBROVASCULAR ACCIDENT PROPHYLAXIS
     Dosage: 100 MG DAILY
     Route: 048
     Dates: start: 2011
  10. METHYCOOL [Concomitant]
     Indication: HYPOAESTHESIA
     Dosage: 4500 MCG DAILY
     Route: 048
     Dates: start: 20090406
  11. ALFACALCIDOL [Concomitant]
     Indication: OSTEOPOROSIS
     Dosage: 1 MCG DAILY
     Route: 048
     Dates: start: 20110905
  12. BONOTEO [Concomitant]
     Indication: OSTEOPOROSIS
     Dosage: 50 MG DAILY
     Route: 048
     Dates: start: 20111003
  13. ISCOTIN [Concomitant]
     Indication: ANTIBIOTIC PROPHYLAXIS
     Dates: start: 20120905
  14. PYRIDOXAL 5-PHOSPHATE MONOHYDRATE [Concomitant]
     Indication: ANTIBIOTIC PROPHYLAXIS
     Dates: start: 20120905

REACTIONS (1)
  - Spinal osteoarthritis [Recovered/Resolved]
